FAERS Safety Report 19841989 (Version 2)
Quarter: 2021Q4

REPORT INFORMATION
  Report Type: Other
  Country: FR (occurrence: FR)
  Receive Date: 20210916
  Receipt Date: 20211109
  Transmission Date: 20220303
  Serious: Yes (Hospitalization, Other)
  Sender: FDA-Public Use
  Company Number: None

PATIENT
  Age: 60 Year
  Sex: Male

DRUGS (2)
  1. AMPHOTERICIN B [Suspect]
     Active Substance: AMPHOTERICIN B
     Indication: Visceral leishmaniasis
     Dosage: 3 MG/KG/HOUR
     Route: 042
     Dates: start: 20210602, end: 20210606
  2. MILTEFOSINE [Suspect]
     Active Substance: MILTEFOSINE
     Indication: Visceral leishmaniasis
     Dosage: 50 MG /3/HOUR
     Route: 048
     Dates: start: 20210605, end: 20210628

REACTIONS (1)
  - Tubulointerstitial nephritis [Recovering/Resolving]

NARRATIVE: CASE EVENT DATE: 20210629
